APPROVED DRUG PRODUCT: OCTREOTIDE ACETATE
Active Ingredient: OCTREOTIDE ACETATE
Strength: EQ 1MG BASE/ML
Dosage Form/Route: INJECTABLE;INJECTION
Application: A091041 | Product #002 | TE Code: AP
Applicant: SAGENT PHARMACEUTICALS INC
Approved: Nov 12, 2013 | RLD: No | RS: No | Type: RX